FAERS Safety Report 17110598 (Version 2)
Quarter: 2019Q4

REPORT INFORMATION
  Report Type: Spontaneous
  Country: US (occurrence: US)
  Receive Date: 20191204
  Receipt Date: 20191227
  Transmission Date: 20200122
  Serious: No
  Sender: FDA-Public Use
  Company Number: US-PFIZER INC-2019522539

PATIENT
  Age: 34 Year
  Sex: Female

DRUGS (1)
  1. ALAVERT ALLERGY [Suspect]
     Active Substance: LORATADINE
     Dosage: 1 DF, UNK (TAKE ONE PILL AND IT LASTED MORE THAN 24 HOURS)

REACTIONS (1)
  - Therapeutic product effect prolonged [Unknown]
